FAERS Safety Report 8182127-4 (Version None)
Quarter: 2012Q1

REPORT INFORMATION
  Report Type: 
  Country: None (occurrence: None)
  Receive Date: 20120302
  Receipt Date: 20120119
  Transmission Date: 20120608
  Serious: Yes (Other)
  Sender: FDA-Public Use
  Company Number: PHEH2011US05068

PATIENT
  Sex: Female
  Weight: 66.667 kg

DRUGS (1)
  1. GILENYA [Suspect]
     Indication: RELAPSING-REMITTING MULTIPLE SCLEROSIS
     Dosage: 0.5 MG, QD
     Route: 048
     Dates: start: 20110815

REACTIONS (6)
  - INFLUENZA LIKE ILLNESS [None]
  - BLINDNESS [None]
  - COUGH [None]
  - NAUSEA [None]
  - PAIN IN EXTREMITY [None]
  - INCREASED UPPER AIRWAY SECRETION [None]
